FAERS Safety Report 6611049-2 (Version None)
Quarter: 2010Q1

REPORT INFORMATION
  Report Type: 
  Country: None (occurrence: None)
  Receive Date: 20100303
  Receipt Date: 20100217
  Transmission Date: 20100710
  Serious: Yes (Death, Hospitalization)
  Sender: FDA-Public Use
  Company Number: DE-RANBAXY-2010RR-31345

PATIENT
  Sex: Female

DRUGS (3)
  1. RANITIDINE [Suspect]
  2. AMPICILLIN [Suspect]
     Indication: ARTHRITIS BACTERIAL
  3. TOBRAMYCINE [Suspect]
     Indication: ARTHRITIS BACTERIAL

REACTIONS (9)
  - ARTHRALGIA [None]
  - BRADYCARDIA [None]
  - CIRCULATORY COLLAPSE [None]
  - HEPATOMEGALY [None]
  - LEUKOCYTOSIS [None]
  - ORAL CANDIDIASIS [None]
  - PYREXIA [None]
  - SOMNOLENCE [None]
  - TOXIC EPIDERMAL NECROLYSIS [None]
